FAERS Safety Report 23731680 (Version 1)
Quarter: 2024Q2

REPORT INFORMATION
  Report Type: Report from Study
  Country: US (occurrence: US)
  Receive Date: 20240411
  Receipt Date: 20240411
  Transmission Date: 20240716
  Serious: Yes (Life-Threatening, Hospitalization)
  Sender: FDA-Public Use
  Company Number: US-PFIZER INC-PV202300002904

PATIENT
  Age: 6 Month
  Sex: Male
  Weight: 6 kg

DRUGS (11)
  1. SIROLIMUS [Suspect]
     Active Substance: SIROLIMUS
     Indication: Immunosuppression
     Dosage: 0.3 MG, EVERY 4 HOURS
     Route: 050
     Dates: start: 20220813, end: 20220813
  2. SIROLIMUS [Suspect]
     Active Substance: SIROLIMUS
     Dosage: 0.1 MG, 2X/DAY (BID)
     Route: 050
     Dates: start: 20220814, end: 20220826
  3. SIROLIMUS [Suspect]
     Active Substance: SIROLIMUS
     Dosage: 0.1 MG, 1X/DAY (QD)
     Route: 050
     Dates: start: 20220827, end: 20221129
  4. SIROLIMUS [Suspect]
     Active Substance: SIROLIMUS
     Dosage: 0.1 MG, 2X/DAY (BID)
     Route: 050
     Dates: start: 20221105, end: 20221108
  5. SIROLIMUS [Suspect]
     Active Substance: SIROLIMUS
     Dosage: 0.1 MG, 1X/DAY (QD)
     Route: 050
     Dates: start: 20221203
  6. ACETAMINOPHEN [Concomitant]
     Active Substance: ACETAMINOPHEN
     Dosage: UNK
     Dates: start: 20220606
  7. DIPHENHYDRAMINE [Concomitant]
     Active Substance: DIPHENHYDRAMINE
     Dosage: UNK
     Dates: start: 20220606
  8. BACTRIM [Concomitant]
     Active Substance: SULFAMETHOXAZOLE\TRIMETHOPRIM
     Dosage: UNK
     Dates: start: 20220815
  9. PREDNISONE [Concomitant]
     Active Substance: PREDNISONE
     Dosage: UNK
     Dates: start: 20220816, end: 20221106
  10. ALBUTEROL [Concomitant]
     Active Substance: ALBUTEROL
     Dosage: UNK
     Dates: start: 202211, end: 202212
  11. EPINEPHRINE [Concomitant]
     Active Substance: EPINEPHRINE
     Dosage: UNK
     Dates: start: 202211, end: 202212

REACTIONS (6)
  - Sepsis [Recovered/Resolved]
  - Klebsiella infection [Recovered/Resolved]
  - COVID-19 [Recovered/Resolved]
  - Respiratory syncytial virus bronchiolitis [Recovered/Resolved]
  - Respiratory failure [Recovered/Resolved]
  - Acute kidney injury [Recovered/Resolved]

NARRATIVE: CASE EVENT DATE: 20221104
